FAERS Safety Report 14482160 (Version 9)
Quarter: 2019Q4

REPORT INFORMATION
  Report Type: Report from Study
  Country: US (occurrence: US)
  Receive Date: 20180202
  Receipt Date: 20191213
  Transmission Date: 20200122
  Serious: Yes (Hospitalization, Other)
  Sender: FDA-Public Use
  Company Number: US-ACTELION-A-NJ2018-166325

PATIENT
  Sex: Female
  Weight: 122.45 kg

DRUGS (4)
  1. UPTRAVI [Suspect]
     Active Substance: SELEXIPAG
     Dosage: 600 MCG, BID
     Route: 048
  2. UPTRAVI [Suspect]
     Active Substance: SELEXIPAG
     Indication: PULMONARY HYPERTENSION
     Dosage: 800 MCG, BID
     Route: 048
  3. SILDENAFIL CITRATE. [Concomitant]
     Active Substance: SILDENAFIL CITRATE
  4. CELLCEPT [Concomitant]
     Active Substance: MYCOPHENOLATE MOFETIL\MYCOPHENOLATE MOFETIL HYDROCHLORIDE

REACTIONS (17)
  - Tremor [Unknown]
  - Herpes zoster [Unknown]
  - Scleroderma [Unknown]
  - Memory impairment [Unknown]
  - Product dose omission [Unknown]
  - Amnesia [Unknown]
  - Connective tissue disorder [Unknown]
  - Unresponsive to stimuli [Unknown]
  - Dry mouth [Unknown]
  - Confusional state [Unknown]
  - Urinary tract infection [Unknown]
  - Gout [Unknown]
  - Systemic lupus erythematosus [Unknown]
  - Pain [Unknown]
  - Influenza [Unknown]
  - Disorientation [Unknown]
  - Mental disorder [Unknown]
